FAERS Safety Report 23017622 (Version 4)
Quarter: 2023Q4

REPORT INFORMATION
  Report Type: Report from Study
  Country: IL (occurrence: IL)
  Receive Date: 20231003
  Receipt Date: 20231127
  Transmission Date: 20240110
  Serious: Yes (Hospitalization, Other)
  Sender: FDA-Public Use
  Company Number: IL-TAKEDA-2023TUS093879

PATIENT
  Age: 67 Year
  Sex: Female

DRUGS (1)
  1. HUMAN IMMUNOGLOBULIN G\HYALURONIDASE RECOMBINANT HUMAN [Suspect]
     Active Substance: HUMAN IMMUNOGLOBULIN G\HYALURONIDASE (HUMAN RECOMBINANT)
     Indication: Secondary immunodeficiency
     Dosage: 30 MILLIGRAM, Q4WEEKS
     Route: 058
     Dates: start: 20230703

REACTIONS (5)
  - Herpes zoster [Unknown]
  - Respiratory distress [Recovered/Resolved]
  - Choking sensation [Recovered/Resolved]
  - Post procedural complication [Recovered/Resolved]
  - Skin reaction [Recovered/Resolved]
